FAERS Safety Report 5233664-3 (Version None)
Quarter: 2007Q1

REPORT INFORMATION
  Report Type: 
  Country: None (occurrence: None)
  Receive Date: 20070208
  Receipt Date: 20070117
  Transmission Date: 20070707
  Serious: Yes (Hospitalization, Other)
  Sender: FDA-Public Use
  Company Number: PHHO2007BE01270

PATIENT
  Age: 30 Year
  Sex: Male
  Weight: 55.7 kg

DRUGS (15)
  1. NEORAL [Suspect]
     Indication: RENAL TRANSPLANT
     Dosage: 200 MG, BID
     Route: 048
  2. MEDROL [Concomitant]
     Indication: RENAL TRANSPLANT
     Dosage: 15 MG DAILY
     Route: 048
  3. VALCYTE [Concomitant]
  4. BACTRIM [Concomitant]
  5. AMLOR [Concomitant]
  6. SELOZOK [Concomitant]
  7. MOXON [Concomitant]
  8. RIVOTRIL [Concomitant]
  9. ACEDICON [Concomitant]
  10. KAYEXALATE [Concomitant]
  11. NEORECORMON [Concomitant]
  12. SODIUM BICARBONATE [Concomitant]
  13. LASIX [Concomitant]
  14. AUGMENTIN '125' [Concomitant]
  15. RAD [Suspect]
     Indication: RENAL TRANSPLANT
     Dosage: 0.5 MG, BID
     Route: 048

REACTIONS (3)
  - HYPERCALCAEMIA [None]
  - OVERDOSE [None]
  - RENAL IMPAIRMENT [None]
